FAERS Safety Report 20047931 (Version 1)
Quarter: 2021Q4

REPORT INFORMATION
  Report Type: Other
  Country: US (occurrence: None)
  Receive Date: 20211109
  Receipt Date: 20211109
  Transmission Date: 20220303
  Serious: Yes (Hospitalization)
  Sender: FDA-Public Use
  Company Number: US-ROCHE-2946088

PATIENT
  Age: 59 Year
  Sex: Male
  Weight: 95.340 kg

DRUGS (3)
  1. OCREVUS [Suspect]
     Active Substance: OCRELIZUMAB
     Indication: Primary progressive multiple sclerosis
     Dosage: 300 MG AT DAY 1 AND DAY 2
     Route: 042
  2. REMDESIVIR [Concomitant]
     Active Substance: REMDESIVIR
  3. BARICITINIB [Concomitant]
     Active Substance: BARICITINIB

REACTIONS (1)
  - COVID-19 [Unknown]

NARRATIVE: CASE EVENT DATE: 20210820
